FAERS Safety Report 9778592 (Version 2)
Quarter: 2014Q3

REPORT INFORMATION
  Report Type: Spontaneous
  Country: US (occurrence: None)
  Receive Date: 20131219
  Receipt Date: 20140915
  Transmission Date: 20150326
  Serious: No
  Sender: FDA-Public Use
  Company Number: 2013-US-004334

PATIENT
  Age: 34 Year
  Sex: Female

DRUGS (2)
  1. XYREM [Suspect]
     Active Substance: SODIUM OXYBATE
     Indication: HYPERSOMNIA
     Dosage: 2.25 G, BID, ORAL
     Route: 048
     Dates: start: 201311, end: 2013
  2. NUVIGIL [Suspect]
     Active Substance: ARMODAFINIL
     Indication: PRODUCT USED FOR UNKNOWN INDICATION

REACTIONS (10)
  - Erythema [None]
  - Rhinorrhoea [None]
  - Medical device complication [None]
  - Oral herpes [None]
  - Stress [None]
  - Off label use [None]
  - Rhinalgia [None]
  - Continuous positive airway pressure [None]
  - Condition aggravated [None]
  - Seasonal allergy [None]

NARRATIVE: CASE EVENT DATE: 2013
